FAERS Safety Report 14988431 (Version 3)
Quarter: 2018Q3

REPORT INFORMATION
  Report Type: Spontaneous
  Country: GB (occurrence: GB)
  Receive Date: 20180608
  Receipt Date: 20180822
  Transmission Date: 20181010
  Serious: Yes (Death, Hospitalization, Other)
  Sender: FDA-Public Use
  Company Number: GB-MYLANLABS-2018M1039591

PATIENT
  Age: 59 Year
  Sex: Male

DRUGS (1)
  1. CLOZARIL [Suspect]
     Active Substance: CLOZAPINE
     Indication: SCHIZOPHRENIA
     Dosage: UNK
     Route: 048
     Dates: start: 20020605, end: 20180601

REACTIONS (4)
  - Haemoglobin decreased [Unknown]
  - Platelet count increased [Unknown]
  - Lung neoplasm malignant [Fatal]
  - Lower respiratory tract infection [Unknown]

NARRATIVE: CASE EVENT DATE: 201806
